FAERS Safety Report 7184900-8 (Version None)
Quarter: 2010Q4

REPORT INFORMATION
  Report Type: 
  Country: None (occurrence: None)
  Receive Date: 20101222
  Receipt Date: 20101220
  Transmission Date: 20110411
  Serious: Yes (Other)
  Sender: FDA-Public Use
  Company Number: JP-PFIZER INC-2010175140

PATIENT
  Age: 38 Year
  Sex: Female

DRUGS (4)
  1. PREMARIN [Suspect]
     Dosage: UNK
     Route: 048
     Dates: start: 20060101, end: 20101201
  2. PROVERA [Concomitant]
     Route: 048
  3. CORTRIL [Concomitant]
     Route: 048
  4. DESMOPRESSIN [Concomitant]

REACTIONS (4)
  - HEADACHE [None]
  - VISION BLURRED [None]
  - VISUAL FIELD DEFECT [None]
  - VISUAL IMPAIRMENT [None]
